FAERS Safety Report 24433530 (Version 1)
Quarter: 2024Q4

REPORT INFORMATION
  Report Type: Spontaneous
  Country: US (occurrence: US)
  Receive Date: 20241014
  Receipt Date: 20241014
  Transmission Date: 20250115
  Serious: No
  Sender: BAYER HEALTHCARE PHARMACEUTICALS INC.
  Company Number: US-BAYER-2024A145313

PATIENT
  Age: 19 Year
  Sex: Female

DRUGS (1)
  1. MIRENA [Suspect]
     Active Substance: LEVONORGESTREL
     Dosage: 20?G/DAY
     Route: 015
     Dates: start: 202309

REACTIONS (7)
  - Back pain [None]
  - Vomiting [None]
  - Headache [None]
  - Diarrhoea [None]
  - Feeding disorder [None]
  - Poor quality sleep [None]
  - Terminal insomnia [None]

NARRATIVE: CASE EVENT DATE: 20240911
